FAERS Safety Report 7221376-6 (Version None)
Quarter: 2011Q1

REPORT INFORMATION
  Report Type: 
  Country: None (occurrence: None)
  Receive Date: 20110112
  Receipt Date: 20110110
  Transmission Date: 20110831
  Serious: Yes (Life-Threatening, Hospitalization, Disabling)
  Sender: FDA-Public Use
  Company Number: LB-B.I. PHARMACEUTICALS,INC./RIDGEFIELD-2011-CS-00026AE

PATIENT
  Age: 62 Year
  Sex: Female

DRUGS (5)
  1. COAPROVEL [Concomitant]
     Dosage: IRBESARTAN HYDROCHLOROTHIAZIDE 300MG +12.5MG
  2. AMLOR [Concomitant]
  3. CRESTOR [Concomitant]
  4. PRADAXA [Suspect]
     Indication: ATRIAL FIBRILLATION
     Dosage: 220 MG
     Route: 048
     Dates: start: 20101004, end: 20101201
  5. CONCOR [Concomitant]

REACTIONS (1)
  - ISCHAEMIC STROKE [None]
